FAERS Safety Report 7692818-7 (Version None)
Quarter: 2011Q3

REPORT INFORMATION
  Report Type: 
  Country: None (occurrence: None)
  Receive Date: 20110819
  Receipt Date: 20110814
  Transmission Date: 20111222
  Serious: Yes (Other)
  Sender: FDA-Public Use
  Company Number: IL-ELI_LILLY_AND_COMPANY-IL201108004381

PATIENT
  Sex: Female
  Weight: 94 kg

DRUGS (5)
  1. GLUBEN [Concomitant]
     Indication: DIABETES MELLITUS
  2. GLUCOPHAGE [Concomitant]
     Indication: DIABETES MELLITUS
  3. RAMIPRIL [Concomitant]
     Indication: HYPERTENSION
     Dosage: 2.5 MG, UNK
  4. BYETTA [Suspect]
     Indication: DIABETES MELLITUS
     Dosage: 5 UG, BID
     Route: 058
     Dates: start: 20110811, end: 20110812
  5. CARTIA                                  /HKG/ [Concomitant]
     Indication: ANTICOAGULANT THERAPY

REACTIONS (3)
  - DECREASED APPETITE [None]
  - LOSS OF CONSCIOUSNESS [None]
  - ASTHENIA [None]
